FAERS Safety Report 6104106-0 (Version None)
Quarter: 2009Q1

REPORT INFORMATION
  Report Type: 
  Country: None (occurrence: None)
  Receive Date: 20090305
  Receipt Date: 20090225
  Transmission Date: 20090719
  Serious: Yes (Other)
  Sender: FDA-Public Use
  Company Number: PHEH2009US02154

PATIENT
  Sex: Male
  Weight: 59.864 kg

DRUGS (7)
  1. AREDIA [Suspect]
  2. ZOMETA [Suspect]
  3. ZETIA [Suspect]
  4. RETROVIR [Concomitant]
  5. EPIVIR [Concomitant]
  6. ZERIT [Concomitant]
  7. VIDEX [Concomitant]

REACTIONS (5)
  - CYST [None]
  - HYPOAESTHESIA [None]
  - OSTEONECROSIS [None]
  - OSTEOPENIA [None]
  - TOOTH EXTRACTION [None]
